FAERS Safety Report 16299395 (Version 1)
Quarter: 2019Q2

REPORT INFORMATION
  Report Type: Spontaneous
  Country: CA (occurrence: CA)
  Receive Date: 20190510
  Receipt Date: 20190510
  Transmission Date: 20190711
  Serious: Yes (Other)
  Sender: FDA-Public Use
  Company Number: CA-ANIPHARMA-2019-CA-000580

PATIENT
  Age: 72 Year
  Sex: Male
  Weight: 70.31 kg

DRUGS (7)
  1. UNSPECIFIED VITAMINS [Concomitant]
     Active Substance: VITAMINS
  2. PROPRANOLOL HYDROCHLORIDE (NON-SPECIFIC) [Suspect]
     Active Substance: PROPRANOLOL HYDROCHLORIDE
     Indication: PRODUCT USED FOR UNKNOWN INDICATION
     Dosage: 2 DF, 3X/DAY WEANING OFF  OVER THE NEXT 3 WEEKS
     Route: 065
  3. LOPERAMIDE [Concomitant]
     Active Substance: LOPERAMIDE
     Dosage: 8 TABLETS DAILY AS NEEDED
  4. CRESTOR [Concomitant]
     Active Substance: ROSUVASTATIN CALCIUM
     Dosage: 10 MG DAILY
  5. MESALAMINE. [Concomitant]
     Active Substance: MESALAMINE
     Dosage: 1.2 G; 4 TABLETS DAILY
  6. ACTONEL [Concomitant]
     Active Substance: RISEDRONATE SODIUM
  7. PREDNISONE. [Concomitant]
     Active Substance: PREDNISONE
     Dosage: 5 MG; 5 TABLETS DAILY, DECREASING BY 5 MG WEEKLY UNTIL FINISHED

REACTIONS (9)
  - Diarrhoea [Unknown]
  - Haemoglobin decreased [Unknown]
  - Hernia [Unknown]
  - Weight decreased [Unknown]
  - Colitis [Unknown]
  - Blood albumin decreased [Unknown]
  - Decreased appetite [Unknown]
  - Condition aggravated [Unknown]
  - Basal cell carcinoma [Unknown]

NARRATIVE: CASE EVENT DATE: 20190425
